FAERS Safety Report 5976211-0 (Version None)
Quarter: 2008Q4

REPORT INFORMATION
  Report Type: 
  Country: None (occurrence: None)
  Receive Date: 20081202
  Receipt Date: 20081128
  Transmission Date: 20090506
  Serious: Yes (Death, Hospitalization)
  Sender: FDA-Public Use
  Company Number: ES-ASTRAZENECA-2007AC01872

PATIENT
  Age: 61 Year
  Sex: Male

DRUGS (4)
  1. CASODEX [Suspect]
     Indication: PROSTATE CANCER
     Route: 048
     Dates: start: 20070301, end: 20070619
  2. OMEPRAZOLE [Suspect]
     Dates: start: 20070101
  3. LEUPROLIDE ACETATE [Suspect]
     Dates: start: 20070101
  4. RADIOTHERAPY [Concomitant]
     Dosage: 74 GY OVER 7.4 WEEKS

REACTIONS (3)
  - HEPATIC ENCEPHALOPATHY [None]
  - HEPATITIS TOXIC [None]
  - RENAL FAILURE [None]
